FAERS Safety Report 7568592-1 (Version None)
Quarter: 2011Q2

REPORT INFORMATION
  Report Type: 
  Country: None (occurrence: None)
  Receive Date: 20110617
  Receipt Date: 20110607
  Transmission Date: 20111010
  Serious: Yes (Hospitalization)
  Sender: FDA-Public Use
  Company Number: 948780

PATIENT
  Age: 70 Year
  Sex: Female

DRUGS (3)
  1. (ANESTHETICS) [Concomitant]
  2. CEFUROXIME SODIUM [Concomitant]
  3. CEFUROXIME SODIUM [Suspect]
     Dosage: 0.5 ML, INTRACAMERAL

REACTIONS (6)
  - WRONG DRUG ADMINISTERED [None]
  - CIRCUMSTANCE OR INFORMATION CAPABLE OF LEADING TO MEDICATION ERROR [None]
  - MACULAR ISCHAEMIA [None]
  - RETINAL OEDEMA [None]
  - VISUAL ACUITY REDUCED [None]
  - EYE HAEMORRHAGE [None]
